FAERS Safety Report 5017785-6 (Version None)
Quarter: 2006Q2

REPORT INFORMATION
  Report Type: 
  Country: None (occurrence: None)
  Receive Date: 20060530
  Receipt Date: 20060516
  Transmission Date: 20061013
  Serious: Yes (Hospitalization, Other)
  Sender: FDA-Public Use
  Company Number: 2005155006

PATIENT
  Age: 36 Year
  Sex: Male

DRUGS (3)
  1. CELEBREX [Suspect]
     Indication: ARTHRALGIA
     Dosage: 2 IN 1 D
     Dates: start: 20000101, end: 20040518
  2. CELEBREX [Suspect]
     Indication: BACK PAIN
     Dosage: 2 IN 1 D
     Dates: start: 20000101, end: 20040518
  3. CELEBREX [Suspect]
     Indication: PAIN IN EXTREMITY
     Dosage: 2 IN 1 D
     Dates: start: 20000101, end: 20040518

REACTIONS (3)
  - ARTERIAL OCCLUSIVE DISEASE [None]
  - CARDIAC DISORDER [None]
  - STENT PLACEMENT [None]
